FAERS Safety Report 5761795-8 (Version None)
Quarter: 2008Q2

REPORT INFORMATION
  Report Type: 
  Country: None (occurrence: None)
  Receive Date: 20080602
  Receipt Date: 20080527
  Transmission Date: 20081010
  Serious: Yes (Hospitalization)
  Sender: FDA-Public Use
  Company Number: 163-21880-08040763

PATIENT
  Age: 86 Year
  Sex: Male

DRUGS (1)
  1. REVLIMID [Suspect]
     Indication: MULTIPLE MYELOMA
     Dosage: 25 MG, 1 IN 1 D, ORAL
     Route: 048
     Dates: start: 20080312, end: 20080315

REACTIONS (4)
  - MOVEMENT DISORDER [None]
  - RASH [None]
  - STAPHYLOCOCCAL SEPSIS [None]
  - SWELLING FACE [None]
